FAERS Safety Report 23758840 (Version 1)
Quarter: 2024Q2

REPORT INFORMATION
  Report Type: Other
  Country: US (occurrence: None)
  Receive Date: 20240418
  Receipt Date: 20240418
  Transmission Date: 20240716
  Serious: No
  Sender: FDA-Public Use
  Company Number: US-ROCHE-3464012

PATIENT
  Age: 89 Year
  Sex: Male

DRUGS (11)
  1. BEVACIZUMAB [Suspect]
     Active Substance: BEVACIZUMAB
     Indication: Eye disorder
     Route: 050
  2. AFLIBERCEPT [Concomitant]
     Active Substance: AFLIBERCEPT
     Dosage: 2 MG/0.05 ML
     Route: 050
  3. BRIMONIDINE [Concomitant]
     Active Substance: BRIMONIDINE TARTRATE
     Route: 061
  4. TIMOLOL [Concomitant]
     Active Substance: TIMOLOL
     Route: 061
  5. NETARSUDIL [Concomitant]
     Active Substance: NETARSUDIL
     Route: 061
  6. LATANOPROST [Concomitant]
     Active Substance: LATANOPROST
     Route: 061
  7. PREDNISOLONE [Concomitant]
     Active Substance: PREDNISOLONE
  8. DORZOLAMIDE [Concomitant]
     Active Substance: DORZOLAMIDE
  9. ATROPINE [Concomitant]
     Active Substance: ATROPINE\ATROPINE SULFATE
  10. DIFLUPREDNATE [Concomitant]
     Active Substance: DIFLUPREDNATE
  11. TRIAMCINOLONE [Concomitant]
     Active Substance: TRIAMCINOLONE

REACTIONS (3)
  - Off label use [Unknown]
  - Off label use [Unknown]
  - No adverse event [Unknown]
